FAERS Safety Report 7709516-3 (Version None)
Quarter: 2011Q3

REPORT INFORMATION
  Report Type: 
  Country: None (occurrence: None)
  Receive Date: 20110825
  Receipt Date: 20110817
  Transmission Date: 20111222
  Serious: Yes (Other)
  Sender: FDA-Public Use
  Company Number: CHPA2011US11035

PATIENT
  Age: 65 Year
  Sex: Male

DRUGS (1)
  1. BENEFIBER W/ WHEAT DEXTRIN [Suspect]
     Indication: NUTRITIONAL SUPPORT
     Dosage: 3 TSP, QD
     Route: 048
     Dates: end: 20110701

REACTIONS (3)
  - CONSTIPATION [None]
  - HAEMOGLOBIN DECREASED [None]
  - COELIAC DISEASE [None]
